FAERS Safety Report 8865730 (Version 1)
Quarter: 2012Q4

REPORT INFORMATION
  Report Type: 
  Country: US (occurrence: US)
  Receive Date: 20121024
  Receipt Date: 20121024
  Transmission Date: 20130627
  Serious: No
  Sender: FDA-Public Use
  Company Number: US-AMGEN-USASP2012002405

PATIENT
  Age: 66 Year
  Sex: Male

DRUGS (2)
  1. ENBREL [Suspect]
     Indication: RHEUMATOID ARTHRITIS
     Dosage: 50 mg, qwk
     Dates: start: 20101124
  2. PLAQUENIL                          /00072602/ [Concomitant]
     Dosage: 2 mg, UNK
     Dates: start: 201111

REACTIONS (8)
  - Headache [Recovered/Resolved]
  - Eye pain [Recovered/Resolved]
  - Asthenia [Not Recovered/Not Resolved]
  - Listless [Not Recovered/Not Resolved]
  - Rheumatoid arthritis [Recovered/Resolved]
  - Chest discomfort [Recovered/Resolved]
  - Bronchitis [Recovered/Resolved]
  - Sinusitis [Recovered/Resolved]
